FAERS Safety Report 8270168-8 (Version None)
Quarter: 2012Q2

REPORT INFORMATION
  Report Type: 
  Country: None (occurrence: None)
  Receive Date: 20120410
  Receipt Date: 20120404
  Transmission Date: 20120825
  Serious: Yes (Other)
  Sender: FDA-Public Use
  Company Number: PHHY2012DE029468

PATIENT
  Sex: Female

DRUGS (2)
  1. ABILIFY [Concomitant]
     Dosage: 7.5 MG, QD
  2. CLOZAPINE [Suspect]
     Indication: SCHIZOPHRENIA
     Dosage: 75 MG, QD
     Route: 048
     Dates: start: 20060101

REACTIONS (1)
  - INFECTION [None]
